FAERS Safety Report 6642271-7 (Version None)
Quarter: 2010Q1

REPORT INFORMATION
  Report Type: 
  Country: None (occurrence: None)
  Receive Date: 20100319
  Receipt Date: 20100301
  Transmission Date: 20100710
  Serious: Yes (Other)
  Sender: FDA-Public Use
  Company Number: US-BAYER-200939226NA

PATIENT
  Age: 39 Year
  Sex: Female
  Weight: 67 kg

DRUGS (18)
  1. MAGNEVIST [Suspect]
     Indication: NUCLEAR MAGNETIC RESONANCE IMAGING
     Dates: start: 19991203, end: 19991203
  2. OMNISCAN [Suspect]
     Indication: NUCLEAR MAGNETIC RESONANCE IMAGING
     Dates: start: 20041223, end: 20041223
  3. OMNISCAN [Suspect]
     Dates: start: 20041221, end: 20041221
  4. OPTIMARK [Suspect]
     Indication: NUCLEAR MAGNETIC RESONANCE IMAGING
  5. MULTIHANCE [Suspect]
     Indication: NUCLEAR MAGNETIC RESONANCE IMAGING
  6. PROHANCE [Suspect]
     Indication: NUCLEAR MAGNETIC RESONANCE IMAGING
  7. PREDNISONE [Concomitant]
  8. PLAQUENIL [Concomitant]
  9. BETAMETHASONE [Concomitant]
  10. COUMADIN [Concomitant]
  11. PEPCID [Concomitant]
  12. PHOSLO [Concomitant]
  13. FOSAMAX [Concomitant]
  14. EPOETIN [Concomitant]
  15. NEPHROCAPS [Concomitant]
  16. UNSPECIFIED CONTRAST [Concomitant]
     Route: 042
  17. UNSPECIFIED CONTRAST [Concomitant]
     Route: 048
  18. TECHNETIUM TC 99M TSC [Concomitant]
     Dosage: TOTAL DAILY DOSE: 5 MCI
     Route: 042

REACTIONS (15)
  - DEFORMITY [None]
  - DRY SKIN [None]
  - GENERAL PHYSICAL HEALTH DETERIORATION [None]
  - NEPHROGENIC SYSTEMIC FIBROSIS [None]
  - OEDEMA PERIPHERAL [None]
  - PAIN [None]
  - SCAR [None]
  - SKIN DISORDER [None]
  - SKIN EXFOLIATION [None]
  - SKIN FIBROSIS [None]
  - SKIN HYPERPIGMENTATION [None]
  - SKIN HYPERTROPHY [None]
  - SKIN INDURATION [None]
  - SKIN PLAQUE [None]
  - SKIN TIGHTNESS [None]
